FAERS Safety Report 24207614 (Version 1)
Quarter: 2024Q3

REPORT INFORMATION
  Report Type: Spontaneous
  Country: DE (occurrence: DE)
  Receive Date: 20240814
  Receipt Date: 20240814
  Transmission Date: 20241016
  Serious: Yes (Life-Threatening, Other)
  Sender: CELLTRION
  Company Number: DE-CELLTRION INC.-2024DE018961

PATIENT

DRUGS (4)
  1. BEVACIZUMAB [Suspect]
     Active Substance: BEVACIZUMAB
     Indication: Ovarian cancer stage III
     Dosage: THREE CYCLES FOR THE FIRST AND SECOND CYCLES
  2. BEVACIZUMAB [Suspect]
     Active Substance: BEVACIZUMAB
     Dosage: POSTOPERATIVELY, THE SYSTEMIC THERAPY WAS COMPLETED WITH A FURTHER THREE CYCLES
  3. CARBOPLATIN\PACLITAXEL [Suspect]
     Active Substance: CARBOPLATIN\PACLITAXEL
     Indication: Ovarian cancer stage III
     Dosage: THREE CYCLES OF CARBOPLATIN/PACLITAXEL FOR THE FIRST AND SECOND CYCLES
  4. CARBOPLATIN\PACLITAXEL [Suspect]
     Active Substance: CARBOPLATIN\PACLITAXEL
     Dosage: POSTOPERATIVELY, THE SYSTEMIC THERAPY WAS COMPLETED WITH A FURTHER THREE CYCLES

REACTIONS (3)
  - Uterine rupture [Recovering/Resolving]
  - Proteinuria [Recovering/Resolving]
  - Maternal exposure before pregnancy [Unknown]
